FAERS Safety Report 7396617-5 (Version None)
Quarter: 2011Q2

REPORT INFORMATION
  Report Type: 
  Country: None (occurrence: None)
  Receive Date: 20110406
  Receipt Date: 20110329
  Transmission Date: 20111010
  Serious: Yes (Life-Threatening, Hospitalization)
  Sender: FDA-Public Use
  Company Number: PHHY2011DE26899

PATIENT
  Sex: Male

DRUGS (3)
  1. ANTIHYPERTENSIVES [Concomitant]
     Indication: HYPERTENSION
  2. ACE INHIBITOR NOS [Concomitant]
  3. TASIGNA [Suspect]
     Indication: CHRONIC MYELOID LEUKAEMIA
     Dosage: 150 MG, PER DAY
     Route: 048

REACTIONS (7)
  - MUSCLE CONTRACTIONS INVOLUNTARY [None]
  - DIZZINESS [None]
  - HYPERHIDROSIS [None]
  - CONVULSION [None]
  - NEUROPATHY PERIPHERAL [None]
  - CEREBELLAR INFARCTION [None]
  - DIPLOPIA [None]
